FAERS Safety Report 23628917 (Version 1)
Quarter: 2024Q1

REPORT INFORMATION
  Report Type: Spontaneous
  Country: GB (occurrence: GB)
  Receive Date: 20240313
  Receipt Date: 20240313
  Transmission Date: 20240409
  Serious: Yes (Other)
  Sender: FDA-Public Use
  Company Number: GB-ANIPHARMA-2024-UK-000045

PATIENT
  Age: 75 Year
  Sex: Female
  Weight: 63 kg

DRUGS (3)
  1. ANASTROZOLE [Suspect]
     Active Substance: ANASTROZOLE
     Indication: Adverse drug reaction
     Dosage: 1MG
  2. ATORVASTATIN [Suspect]
     Active Substance: ATORVASTATIN
  3. LANSOPRAZOLE [Suspect]
     Active Substance: LANSOPRAZOLE

REACTIONS (1)
  - Dry eye [Unknown]
